FAERS Safety Report 9660663 (Version 1)
Quarter: 2013Q4

REPORT INFORMATION
  Report Type: Spontaneous
  Country: US (occurrence: US)
  Receive Date: 20131031
  Receipt Date: 20131031
  Transmission Date: 20140711
  Serious: Yes (Hospitalization, Other)
  Sender: FDA-Public Use
  Company Number: US-AMGEN-USASP2013076746

PATIENT
  Age: 32 Year
  Sex: Female

DRUGS (2)
  1. ENBREL [Suspect]
     Indication: RHEUMATOID ARTHRITIS
     Dosage: 50 MG, QWK
     Route: 065
     Dates: start: 200505
  2. METHOTREXATE [Concomitant]
     Dosage: UNK

REACTIONS (5)
  - Premature delivery [Recovered/Resolved]
  - Gestational diabetes [Recovered/Resolved]
  - Premature rupture of membranes [Recovered/Resolved]
  - Pre-eclampsia [Recovered/Resolved]
  - Postpartum haemorrhage [Recovered/Resolved]
